FAERS Safety Report 9930272 (Version 1)
Quarter: 2014Q1

REPORT INFORMATION
  Report Type: Spontaneous
  Country: US (occurrence: US)
  Receive Date: 20140227
  Receipt Date: 20140227
  Transmission Date: 20141002
  Serious: No
  Sender: FDA-Public Use
  Company Number: US-AMGEN-USASP2013080821

PATIENT
  Age: 58 Year
  Sex: Female

DRUGS (2)
  1. ENBREL [Suspect]
     Indication: RHEUMATOID ARTHRITIS
     Dosage: 50 MG, QWK
     Route: 065
     Dates: start: 20130607
  2. METHOTREXATE [Concomitant]
     Dosage: 70 MG, QWK
     Dates: start: 2004

REACTIONS (2)
  - Visual impairment [Not Recovered/Not Resolved]
  - Injection site bruising [Not Recovered/Not Resolved]
